FAERS Safety Report 19629293 (Version 1)
Quarter: 2021Q3

REPORT INFORMATION
  Report Type: Spontaneous
  Country: US (occurrence: US)
  Receive Date: 20210729
  Receipt Date: 20210729
  Transmission Date: 20211014
  Serious: No
  Sender: FDA-Public Use
  Company Number: US-PFIZER INC-2021680973

PATIENT
  Age: 58 Year
  Sex: Female

DRUGS (1)
  1. XELJANZ XR [Suspect]
     Active Substance: TOFACITINIB CITRATE
     Dosage: 11 MG
     Dates: start: 20210531

REACTIONS (15)
  - Somnolence [Unknown]
  - Sinus disorder [Unknown]
  - Pain [Unknown]
  - Disturbance in attention [Unknown]
  - Pain in extremity [Unknown]
  - Asthenia [Unknown]
  - Increased appetite [Unknown]
  - Weight increased [Unknown]
  - Memory impairment [Unknown]
  - Insomnia [Unknown]
  - Bradykinesia [Unknown]
  - Limb discomfort [Unknown]
  - Mass [Unknown]
  - Depression [Unknown]
  - Psoriasis [Unknown]
